FAERS Safety Report 6649070-0 (Version None)
Quarter: 2010Q1

REPORT INFORMATION
  Report Type: 
  Country: None (occurrence: None)
  Receive Date: 20100324
  Receipt Date: 20100316
  Transmission Date: 20100710
  Serious: Yes (Other)
  Sender: FDA-Public Use
  Company Number: US-CEPHALON-2010001509

PATIENT
  Age: 66 Year
  Sex: Male

DRUGS (1)
  1. NUVIGIL [Suspect]
     Indication: SLEEP APNOEA SYNDROME
     Route: 048
     Dates: start: 20091110, end: 20100201

REACTIONS (3)
  - HALLUCINATION [None]
  - MANIA [None]
  - PARANOIA [None]
